FAERS Safety Report 4333885-8 (Version None)
Quarter: 2004Q2

REPORT INFORMATION
  Report Type: 
  Country: None (occurrence: None)
  Receive Date: 20040405
  Receipt Date: 20040405
  Transmission Date: 20050107
  Serious: Yes (Hospitalization)
  Sender: FDA-Public Use
  Company Number: None

PATIENT
  Age: 78 Year
  Sex: Male
  Weight: 54.8852 kg

DRUGS (12)
  1. AMIODARONE HCL [Suspect]
     Indication: ATRIAL FIBRILLATION
     Dosage: 200 MG DAILY ORAL
     Route: 048
     Dates: start: 20040101, end: 20040329
  2. DIGOXIN [Concomitant]
  3. DILTIAZEM [Concomitant]
  4. ACIPHEX [Concomitant]
  5. PRAVACHOL [Concomitant]
  6. ACCUPRIL [Concomitant]
  7. TICLID [Concomitant]
  8. FLOVENT [Concomitant]
  9. COMBIVENT [Concomitant]
  10. COUMADIN [Concomitant]
  11. LASIX [Concomitant]
  12. ACTOS [Concomitant]

REACTIONS (9)
  - ANOREXIA [None]
  - ASTHENIA [None]
  - DIARRHOEA [None]
  - FALL [None]
  - GAIT DISTURBANCE [None]
  - NAUSEA [None]
  - PANCREATIC ENZYMES INCREASED [None]
  - VOMITING [None]
  - WEIGHT DECREASED [None]
